FAERS Safety Report 16332977 (Version 3)
Quarter: 2019Q2

REPORT INFORMATION
  Report Type: Spontaneous
  Country: US (occurrence: US)
  Receive Date: 20190520
  Receipt Date: 20190602
  Transmission Date: 20190711
  Serious: No
  Sender: FDA-Public Use
  Company Number: US-JNJFOC-20190436155

PATIENT
  Age: 64 Year
  Sex: Male
  Weight: 86.18 kg

DRUGS (3)
  1. NIFEDIPINE. [Concomitant]
     Active Substance: NIFEDIPINE
     Indication: HYPERTENSION
     Route: 065
  2. XARELTO [Suspect]
     Active Substance: RIVAROXABAN
     Indication: THROMBOSIS PROPHYLAXIS
     Route: 048
     Dates: start: 201904, end: 201904
  3. SOTALOL. [Concomitant]
     Active Substance: SOTALOL
     Route: 065

REACTIONS (11)
  - Drug ineffective [Unknown]
  - Nausea [Recovered/Resolved]
  - Wound haemorrhage [Recovered/Resolved]
  - Malaise [Recovered/Resolved]
  - Feeling abnormal [Recovered/Resolved]
  - Rash [Recovered/Resolved]
  - Burning sensation [Not Recovered/Not Resolved]
  - Bleeding time prolonged [Recovered/Resolved]
  - Peripheral swelling [Not Recovered/Not Resolved]
  - Hot flush [Recovered/Resolved]
  - Urticaria [Unknown]

NARRATIVE: CASE EVENT DATE: 201904
